FAERS Safety Report 5712671-8 (Version None)
Quarter: 2008Q2

REPORT INFORMATION
  Report Type: 
  Country: None (occurrence: None)
  Receive Date: 20080418
  Receipt Date: 20080404
  Transmission Date: 20081010
  Serious: Yes (Death, Life-Threatening, Other)
  Sender: FDA-Public Use
  Company Number: 2008030491

PATIENT
  Sex: Male

DRUGS (4)
  1. DALTEPARIN SODIUM [Suspect]
     Indication: DIALYSIS
     Dosage: INTRAVENOUS
     Route: 042
     Dates: start: 20080326, end: 20080331
  2. FUTHAN (NAFAMOSTAT MESILATE) [Concomitant]
  3. HUMULIN R [Concomitant]
  4. LANSOPRAZOLE [Concomitant]

REACTIONS (2)
  - HEPARIN-INDUCED THROMBOCYTOPENIA [None]
  - THROMBOSIS IN DEVICE [None]
